FAERS Safety Report 24203108 (Version 3)
Quarter: 2024Q4

REPORT INFORMATION
  Report Type: Spontaneous
  Country: US (occurrence: US)
  Receive Date: 20240813
  Receipt Date: 20241119
  Transmission Date: 20250115
  Serious: No
  Sender: KYOWA
  Company Number: US-KYOWAKIRIN-2024KK019076

PATIENT

DRUGS (1)
  1. NOURIANZ [Suspect]
     Active Substance: ISTRADEFYLLINE
     Indication: Parkinson^s disease
     Dosage: 40 MG, QD (TAKE 40 MG TABLET BY MOUTH EVERY DAY)
     Route: 048
     Dates: start: 20240410

REACTIONS (2)
  - Condition aggravated [Not Recovered/Not Resolved]
  - Product dose omission in error [Not Recovered/Not Resolved]
